FAERS Safety Report 6544353-7 (Version None)
Quarter: 2010Q1

REPORT INFORMATION
  Report Type: 
  Country: None (occurrence: None)
  Receive Date: 20100120
  Receipt Date: 20100120
  Transmission Date: 20100710
  Serious: No
  Sender: FDA-Public Use
  Company Number: None

PATIENT
  Sex: Female
  Weight: 49 kg

DRUGS (1)
  1. ZONISAMIDE [Suspect]
     Dosage: ZONISAMIDE 150MG EVERY NIGHT PO
     Route: 048
     Dates: start: 20081201, end: 20100119

REACTIONS (3)
  - CONVULSION [None]
  - DISEASE RECURRENCE [None]
  - PRODUCT SUBSTITUTION ISSUE [None]
